FAERS Safety Report 8250889-3 (Version None)
Quarter: 2012Q2

REPORT INFORMATION
  Report Type: 
  Country: None (occurrence: None)
  Receive Date: 20120402
  Receipt Date: 20120321
  Transmission Date: 20120825
  Serious: Yes (Life-Threatening)
  Sender: FDA-Public Use
  Company Number: DE-PFIZER INC-2012073360

PATIENT
  Age: 73 Year
  Sex: Male
  Weight: 65 kg

DRUGS (3)
  1. RITUXIMAB [Suspect]
     Dosage: UNK
     Dates: start: 20120307
  2. TEMSIROLIMUS [Suspect]
     Dosage: UNK
     Dates: start: 20120309
  3. BENDAMUSTINE [Suspect]
     Dosage: UNK
     Dates: start: 20120308

REACTIONS (1)
  - LYMPHOPENIA [None]
